FAERS Safety Report 19918494 (Version 1)
Quarter: 2021Q4

REPORT INFORMATION
  Report Type: Spontaneous
  Country: US (occurrence: US)
  Receive Date: 20211005
  Receipt Date: 20211005
  Transmission Date: 20220303
  Serious: No
  Sender: FDA-Public Use
  Company Number: None

PATIENT
  Age: 69 Year
  Sex: Female
  Weight: 61.2 kg

DRUGS (2)
  1. DUPIXENT [Suspect]
     Active Substance: DUPILUMAB
     Indication: Asthma
     Dosage: ?          OTHER FREQUENCY:EVERY 14 DAYS;
     Route: 058
     Dates: start: 20210927
  2. XOLAIR [Concomitant]
     Active Substance: OMALIZUMAB
     Dates: start: 20180501

REACTIONS (4)
  - Serum sickness [None]
  - Photophobia [None]
  - Conjunctivitis [None]
  - Eye pain [None]

NARRATIVE: CASE EVENT DATE: 20210929
